FAERS Safety Report 22630150 (Version 3)
Quarter: 2023Q2

REPORT INFORMATION
  Report Type: Spontaneous
  Country: JP (occurrence: JP)
  Receive Date: 20230622
  Receipt Date: 20230622
  Transmission Date: 20230722
  Serious: Yes (Death, Other)
  Sender: FDA-Public Use
  Company Number: JP-SPECGX-T202200037

PATIENT
  Age: 50 Year
  Sex: Male
  Weight: 46 kg

DRUGS (29)
  1. METHADONE [Suspect]
     Active Substance: METHADONE HYDROCHLORIDE
     Indication: Cancer pain
     Dosage: 30 MILLIGRAM, QD
     Route: 048
     Dates: start: 20211018, end: 20220106
  2. OXYCODONE HYDROCHLORIDE [Suspect]
     Active Substance: OXYCODONE HYDROCHLORIDE
     Indication: Cancer pain
     Dosage: 36 MILLIGRAM, QD
     Route: 058
     Dates: start: 20220106, end: 20220106
  3. SYMPROIC [Concomitant]
     Active Substance: NALDEMEDINE
     Indication: Prophylaxis
     Dosage: 0.2 MILLIGRAM
     Route: 048
     Dates: start: 20210617, end: 20220106
  4. PREGABALIN [Concomitant]
     Active Substance: PREGABALIN
     Indication: Cancer pain
     Dosage: 150 MILLIGRAM
     Route: 048
     Dates: start: 20210712
  5. PREGABALIN [Concomitant]
     Active Substance: PREGABALIN
     Dosage: 75 MILLIGRAM
     Route: 048
     Dates: end: 20220106
  6. CALONAL [Concomitant]
     Active Substance: ACETAMINOPHEN
     Indication: Cancer pain
     Dosage: 3600 MILLIGRAM
     Route: 048
     Dates: start: 20210916
  7. CALONAL [Concomitant]
     Active Substance: ACETAMINOPHEN
     Dosage: 900 MILLIGRAM
     Route: 048
     Dates: end: 20220106
  8. LINZESS [Concomitant]
     Active Substance: LINACLOTIDE
     Indication: Pancreatic carcinoma
     Dosage: 0.5 MILLIGRAM
     Route: 048
     Dates: start: 20211028
  9. LINZESS [Concomitant]
     Active Substance: LINACLOTIDE
     Dosage: 0.5 MILLIGRAM
     Route: 048
     Dates: end: 20220106
  10. CALCIUM CARBONATE\CHOLECALCIFEROL\MAGNESIUM CARBONATE [Concomitant]
     Active Substance: CALCIUM CARBONATE\CHOLECALCIFEROL\MAGNESIUM CARBONATE
     Indication: Prophylaxis
     Dosage: 2 DOSAGE FORM
     Route: 048
     Dates: start: 20211223
  11. CALCIUM CARBONATE\CHOLECALCIFEROL\MAGNESIUM CARBONATE [Concomitant]
     Active Substance: CALCIUM CARBONATE\CHOLECALCIFEROL\MAGNESIUM CARBONATE
     Dosage: 1 DOSAGE FORM
     Route: 048
     Dates: end: 20220106
  12. FUROSEMIDE [Concomitant]
     Active Substance: FUROSEMIDE
     Indication: Pancreatic carcinoma
     Dosage: 20 MILLIGRAM
     Route: 048
     Dates: start: 20211216
  13. FUROSEMIDE [Concomitant]
     Active Substance: FUROSEMIDE
     Dosage: 20 MILLIGRAM
     Route: 048
     Dates: end: 20220106
  14. NAPROXEN [Concomitant]
     Active Substance: NAPROXEN
     Indication: Pancreatic carcinoma
     Dosage: 600 MILLIGRAM
     Route: 048
     Dates: start: 20210520
  15. NAPROXEN [Concomitant]
     Active Substance: NAPROXEN
     Dosage: 200 MILLIGRAM
     Route: 048
     Dates: end: 20220106
  16. NEXIUM [Concomitant]
     Active Substance: ESOMEPRAZOLE MAGNESIUM
     Indication: Prophylaxis
     Dosage: 10 MILLIGRAM
     Route: 048
     Dates: start: 20161125
  17. NEXIUM [Concomitant]
     Active Substance: ESOMEPRAZOLE MAGNESIUM
     Dosage: 10 MILLIGRAM
     Route: 048
     Dates: end: 20220106
  18. BIFIDOBACTERIUM SPP. [Concomitant]
     Active Substance: BIFIDOBACTERIUM SPP.
     Indication: Pancreatic carcinoma
     Dosage: 3 GRAM
     Route: 048
     Dates: start: 20161125
  19. BIFIDOBACTERIUM SPP. [Concomitant]
     Active Substance: BIFIDOBACTERIUM SPP.
     Dosage: 1 GRAM
     Route: 048
     Dates: end: 20220106
  20. PANCREATIN [Concomitant]
     Active Substance: PANCRELIPASE
     Indication: Pancreatic carcinoma
     Dosage: 3 GRAM
     Route: 048
     Dates: start: 20161125
  21. PANCREATIN [Concomitant]
     Active Substance: PANCRELIPASE
     Dosage: 1 GRAM
     Route: 048
     Dates: end: 20220106
  22. HERBALS [Concomitant]
     Active Substance: HERBALS
     Indication: Pancreatic carcinoma
     Dosage: 7.5 GRAM
     Route: 048
     Dates: start: 20161126
  23. HERBALS [Concomitant]
     Active Substance: HERBALS
     Dosage: 2.5 GRAM
     Route: 048
     Dates: end: 20220106
  24. MAGNESIUM OXIDE [Concomitant]
     Active Substance: MAGNESIUM OXIDE
     Indication: Prophylaxis
     Dosage: 1980 MILLIGRAM
     Route: 048
     Dates: start: 20161020, end: 20220106
  25. MAGNESIUM OXIDE [Concomitant]
     Active Substance: MAGNESIUM OXIDE
     Dosage: 660 MILLIGRAM
     Route: 048
     Dates: start: 20161020, end: 20220106
  26. URSODIOL [Concomitant]
     Active Substance: URSODIOL
     Indication: Pancreatic carcinoma
     Dosage: 600 MILLIGRAM
     Route: 048
     Dates: start: 20210617
  27. URSODIOL [Concomitant]
     Active Substance: URSODIOL
     Dosage: 200 MILLIGRAM
     Route: 048
     Dates: end: 20220106
  28. SPIRONOLACTONE [Concomitant]
     Active Substance: SPIRONOLACTONE
     Indication: Pancreatic carcinoma
     Dosage: 50 MILLIGRAM
     Route: 048
     Dates: start: 20211223
  29. SPIRONOLACTONE [Concomitant]
     Active Substance: SPIRONOLACTONE
     Dosage: 50 MILLIGRAM
     Route: 048
     Dates: end: 20220106

REACTIONS (4)
  - Adenocarcinoma pancreas [Fatal]
  - Condition aggravated [Fatal]
  - Cardiac arrest [Fatal]
  - Muscular weakness [Unknown]

NARRATIVE: CASE EVENT DATE: 20220101
